FAERS Safety Report 6587598-2 (Version None)
Quarter: 2010Q1

REPORT INFORMATION
  Report Type: 
  Country: None (occurrence: None)
  Receive Date: 20100218
  Receipt Date: 20100211
  Transmission Date: 20100710
  Serious: Yes (Other)
  Sender: FDA-Public Use
  Company Number: US-TEVA-224139USA

PATIENT
  Sex: Female
  Weight: 72.64 kg

DRUGS (2)
  1. COPAXONE [Suspect]
     Indication: MULTIPLE SCLEROSIS
     Route: 058
     Dates: start: 20081113, end: 20100211
  2. GABAPENTIN [Concomitant]

REACTIONS (1)
  - APLASTIC ANAEMIA [None]
